FAERS Safety Report 8302674-1 (Version None)
Quarter: 2012Q2

REPORT INFORMATION
  Report Type: 
  Country: None (occurrence: None)
  Receive Date: 20120420
  Receipt Date: 20120416
  Transmission Date: 20120825
  Serious: No
  Sender: FDA-Public Use
  Company Number: US-PFIZER INC-2012088578

PATIENT
  Sex: Female
  Weight: 55.8 kg

DRUGS (8)
  1. LOVASTATIN [Suspect]
     Indication: BLOOD CHOLESTEROL INCREASED
     Dosage: UNK
     Dates: start: 20120201
  2. LIPITOR [Suspect]
     Indication: BLOOD CHOLESTEROL INCREASED
     Dosage: 40 MG, 1X/DAY
     Route: 048
     Dates: start: 20100801, end: 20110901
  3. GABAPENTIN [Suspect]
     Indication: PAIN
     Dosage: 600 MG, 3X/DAY
     Route: 048
     Dates: start: 20110901
  4. COZAAR [Concomitant]
     Indication: HYPERTENSION
     Dosage: 100 MG, UNK
     Dates: start: 20100801
  5. NEURONTIN [Suspect]
     Indication: PAIN
     Dosage: 100 MG, 3X/DAY
     Route: 048
     Dates: start: 20100801, end: 20110901
  6. ASPIRIN [Concomitant]
     Dosage: 325 MG, UNK
  7. CYMBALTA [Suspect]
     Indication: DEPRESSION
     Dosage: 30 MG, UNK
     Dates: start: 20100801, end: 20100101
  8. HYDROCHLOROTHIAZIDE [Concomitant]
     Dosage: UNK, 1X/DAY

REACTIONS (3)
  - PAIN [None]
  - MYALGIA [None]
  - DRUG INEFFECTIVE [None]
